FAERS Safety Report 8217625-8 (Version None)
Quarter: 2012Q1

REPORT INFORMATION
  Report Type: 
  Country: None (occurrence: None)
  Receive Date: 20120319
  Receipt Date: 20120319
  Transmission Date: 20120608
  Serious: No
  Sender: FDA-Public Use
  Company Number: None

PATIENT
  Sex: Female
  Weight: 58.967 kg

DRUGS (1)
  1. TRADJENTA [Suspect]
     Indication: DIABETES MELLITUS
     Dosage: 5 MG
     Dates: start: 20120115, end: 20120315

REACTIONS (3)
  - MUSCULOSKELETAL STIFFNESS [None]
  - DYSPEPSIA [None]
  - INFLUENZA LIKE ILLNESS [None]
